FAERS Safety Report 5483621-7 (Version None)
Quarter: 2007Q4

REPORT INFORMATION
  Report Type: 
  Country: None (occurrence: None)
  Receive Date: 20071010
  Receipt Date: 20071010
  Transmission Date: 20080405
  Serious: No
  Sender: FDA-Public Use
  Company Number: None

PATIENT
  Sex: Female

DRUGS (2)
  1. BUPROPION XL 100 [Suspect]
     Indication: DISEASE RECURRENCE
     Dosage: 1 TAB 2X A DAY
  2. BUPROPION XL 100 [Suspect]
     Indication: MAJOR DEPRESSION
     Dosage: 1 TAB 2X A DAY

REACTIONS (3)
  - DEPRESSION [None]
  - PHARMACEUTICAL PRODUCT COMPLAINT [None]
  - STOMACH DISCOMFORT [None]
